FAERS Safety Report 9587060 (Version 2)
Quarter: 2013Q4

REPORT INFORMATION
  Report Type: Report from Study
  Country: CN (occurrence: CN)
  Receive Date: 20131003
  Receipt Date: 20131025
  Transmission Date: 20140711
  Serious: Yes (Other)
  Sender: FDA-Public Use
  Company Number: CN-ELI_LILLY_AND_COMPANY-CN201309008213

PATIENT
  Sex: Male
  Weight: 28 kg

DRUGS (1)
  1. ATOMOXETINE HYDROCHLORIDE [Suspect]
     Indication: ATTENTION DEFICIT/HYPERACTIVITY DISORDER
     Dosage: 25 MG, QD
     Route: 048
     Dates: start: 20130729

REACTIONS (3)
  - Cachexia [Recovering/Resolving]
  - Decreased appetite [Recovering/Resolving]
  - Attention deficit/hyperactivity disorder [Recovering/Resolving]
